FAERS Safety Report 9914935 (Version 2)
Quarter: 2014Q1

REPORT INFORMATION
  Report Type: Report from Study
  Country: CA (occurrence: CA)
  Receive Date: 20140220
  Receipt Date: 20140220
  Transmission Date: 20141002
  Serious: Yes (Other)
  Sender: FDA-Public Use
  Company Number: CA-ABBVIE-14P-028-1197422-00

PATIENT
  Age: 58 Year
  Sex: Female

DRUGS (1)
  1. HUMIRA [Suspect]
     Indication: RHEUMATOID ARTHRITIS
     Route: 058
     Dates: start: 20131129, end: 20140124

REACTIONS (4)
  - Tooth disorder [Unknown]
  - Tooth infection [Recovered/Resolved with Sequelae]
  - Gingivitis [Recovered/Resolved]
  - Swelling [Recovered/Resolved]
